FAERS Safety Report 5615899-0 (Version None)
Quarter: 2008Q1

REPORT INFORMATION
  Report Type: 
  Country: None (occurrence: None)
  Receive Date: 20080114
  Receipt Date: 20071115
  Transmission Date: 20080703
  Serious: Yes (Other)
  Sender: FDA-Public Use
  Company Number: A03200706588

PATIENT
  Age: 69 Year
  Sex: Male

DRUGS (1)
  1. PLAVIX [Suspect]
     Indication: ACUTE CORONARY SYNDROME
     Dosage: ORAL
     Route: 048
     Dates: start: 20070810, end: 20071101

REACTIONS (1)
  - SUBDURAL HAEMATOMA [None]
